FAERS Safety Report 25844828 (Version 1)
Quarter: 2025Q3

REPORT INFORMATION
  Report Type: Report from Study
  Country: JP (occurrence: JP)
  Receive Date: 20250925
  Receipt Date: 20250925
  Transmission Date: 20251021
  Serious: Yes (Other)
  Sender: ABBVIE
  Company Number: JP-TAKEDA-2025TJP009619

PATIENT
  Sex: Male
  Weight: 57.9 kg

DRUGS (3)
  1. LEUPROLIDE ACETATE [Suspect]
     Active Substance: LEUPROLIDE ACETATE
     Indication: Bulbospinal muscular atrophy congenital
     Dosage: 11.25 MILLIGRAM, Q3MONTHS
     Route: 058
     Dates: start: 20180126
  2. SHAKUYAKUKANZOTO [Concomitant]
     Active Substance: HERBALS
     Indication: Muscle spasms
     Dates: start: 20180420
  3. LOXOPROFEN [Concomitant]
     Active Substance: LOXOPROFEN
     Indication: Tension headache
     Dates: start: 20180713, end: 20181012

REACTIONS (1)
  - Diabetes mellitus [Not Recovered/Not Resolved]
